FAERS Safety Report 19865438 (Version 1)
Quarter: 2021Q3

REPORT INFORMATION
  Report Type: Spontaneous
  Country: US (occurrence: US)
  Receive Date: 20210921
  Receipt Date: 20210921
  Transmission Date: 20211014
  Serious: Yes (Life-Threatening)
  Sender: FDA-Public Use
  Company Number: None

PATIENT
  Age: 24 Year
  Sex: Female
  Weight: 58.5 kg

DRUGS (4)
  1. ARIPIPRAZOLE. [Suspect]
     Active Substance: ARIPIPRAZOLE
     Indication: DEPRESSION
     Dates: start: 20210916
  2. FLUOXETINE [Concomitant]
     Active Substance: FLUOXETINE HYDROCHLORIDE
  3. ARIPIPRAZOLE. [Suspect]
     Active Substance: ARIPIPRAZOLE
     Indication: ATTENTION DEFICIT HYPERACTIVITY DISORDER
     Dates: start: 20210916
  4. ARIPIPRAZOLE. [Suspect]
     Active Substance: ARIPIPRAZOLE
     Indication: ANXIETY
     Dates: start: 20210916

REACTIONS (14)
  - Somnolence [None]
  - Headache [None]
  - Throat irritation [None]
  - Asthenia [None]
  - Abdominal discomfort [None]
  - Decreased appetite [None]
  - Nasal congestion [None]
  - Dizziness [None]
  - Insomnia [None]
  - Constipation [None]
  - Fatigue [None]
  - Tremor [None]
  - Panic attack [None]
  - Nausea [None]

NARRATIVE: CASE EVENT DATE: 19961004
